FAERS Safety Report 19874756 (Version 4)
Quarter: 2022Q3

REPORT INFORMATION
  Report Type: Report from Study
  Country: US (occurrence: US)
  Receive Date: 20210922
  Receipt Date: 20220912
  Transmission Date: 20221026
  Serious: Yes (Hospitalization, Other)
  Sender: FDA-Public Use
  Company Number: US-ABBVIE-21K-163-4088945-00

PATIENT
  Sex: Female

DRUGS (6)
  1. RINVOQ [Suspect]
     Active Substance: UPADACITINIB
     Indication: Rheumatoid arthritis
     Route: 048
  2. RINVOQ [Suspect]
     Active Substance: UPADACITINIB
     Route: 048
  3. RINVOQ [Suspect]
     Active Substance: UPADACITINIB
     Route: 048
  4. PFIZER-BIONTECH COVID-19 VACCINE [Concomitant]
     Active Substance: TOZINAMERAN
     Indication: COVID-19 immunisation
     Dosage: PFIZER BIONTECH
     Route: 030
     Dates: start: 20210820, end: 20210820
  5. PFIZER-BIONTECH COVID-19 VACCINE [Concomitant]
     Active Substance: TOZINAMERAN
     Dosage: PFIZER BIONTECH
     Route: 030
     Dates: start: 20210920, end: 20210920
  6. MODERNA COVID-19 VACCINE [Concomitant]
     Active Substance: ELASOMERAN
     Indication: COVID-19 immunisation
     Route: 030

REACTIONS (16)
  - Spinal operation [Unknown]
  - Pain [Unknown]
  - Anxiety [Unknown]
  - Sleep disorder [Unknown]
  - Joint swelling [Unknown]
  - Nodule [Unknown]
  - Anaemia [Unknown]
  - Weight increased [Unknown]
  - Fungal infection [Recovered/Resolved]
  - Alopecia [Unknown]
  - Hypoaesthesia [Unknown]
  - Paraesthesia [Unknown]
  - Hypovitaminosis [Unknown]
  - Oral infection [Unknown]
  - Blood pressure abnormal [Unknown]
  - Stress [Unknown]

NARRATIVE: CASE EVENT DATE: 20210101
